FAERS Safety Report 7966881-X (Version None)
Quarter: 2011Q4

REPORT INFORMATION
  Report Type: 
  Country: None (occurrence: None)
  Receive Date: 20111209
  Receipt Date: 20111207
  Transmission Date: 20120403
  Serious: Yes (Other)
  Sender: FDA-Public Use
  Company Number: US-PFIZER INC-2011169038

PATIENT
  Sex: Male
  Weight: 93 kg

DRUGS (4)
  1. ALTACE [Suspect]
     Indication: BLOOD PRESSURE ABNORMAL
     Dosage: 2.5 MG, 1X/DAY
     Route: 048
     Dates: end: 20110701
  2. ASPIRIN [Concomitant]
     Dosage: ^A QUARTER PART^
  3. COLACE [Concomitant]
     Indication: CONSTIPATION
     Dosage: UNK
  4. LIPITOR [Concomitant]
     Dosage: UNK

REACTIONS (1)
  - BLOOD CREATININE INCREASED [None]
